FAERS Safety Report 9109475 (Version 1)
Quarter: 2013Q1

REPORT INFORMATION
  Report Type: Spontaneous
  Country: US (occurrence: US)
  Receive Date: 20130222
  Receipt Date: 20130222
  Transmission Date: 20140127
  Serious: Yes (Hospitalization)
  Sender: FDA-Public Use
  Company Number: US-BAYER-2013-023332

PATIENT
  Age: 78 Year
  Sex: Male

DRUGS (8)
  1. XARELTO [Suspect]
     Indication: CEREBROVASCULAR ACCIDENT PROPHYLAXIS
     Route: 048
     Dates: start: 20121221
  2. XARELTO [Interacting]
     Indication: ATRIAL FIBRILLATION
  3. ACETYLSALICYLIC ACID({=100 MG) [Interacting]
     Indication: ANGIOPATHY
     Dosage: 81 MG, UNK
  4. METOPROLOL [Concomitant]
     Dosage: 50 MG, QD
     Route: 065
  5. DIOVAN [Concomitant]
     Dosage: 80 MG, UNK
     Route: 065
  6. PREVACID [Concomitant]
     Dosage: 30 MG, BID
     Route: 065
  7. LIPITOR [Concomitant]
     Dosage: 20 MG, UNK
     Route: 065
  8. FISH OIL [Concomitant]
     Dosage: 1 DF, QD
     Route: 065

REACTIONS (6)
  - Gastrointestinal haemorrhage [Unknown]
  - Occult blood positive [Unknown]
  - Haemoglobin decreased [Unknown]
  - Oesophagitis [Unknown]
  - Syncope [Unknown]
  - Transient ischaemic attack [Unknown]
